FAERS Safety Report 20582624 (Version 1)
Quarter: 2022Q1

REPORT INFORMATION
  Report Type: Spontaneous
  Country: IN (occurrence: IN)
  Receive Date: 20220311
  Receipt Date: 20220311
  Transmission Date: 20220423
  Serious: Yes (Hospitalization, Other)
  Sender: FDA-Public Use
  Company Number: IN-BoehringerIngelheim-2022-BI-158291

PATIENT
  Age: 68 Year
  Sex: Female

DRUGS (1)
  1. PRAMIPEXOLE [Suspect]
     Active Substance: PRAMIPEXOLE
     Indication: Parkinson^s disease

REACTIONS (1)
  - Atrioventricular block complete [Recovered/Resolved]
